FAERS Safety Report 8961407 (Version 1)
Quarter: 2012Q4

REPORT INFORMATION
  Report Type: 
  Country: US (occurrence: US)
  Receive Date: 20121213
  Receipt Date: 20121213
  Transmission Date: 20130627
  Serious: No
  Sender: FDA-Public Use
  Company Number: US-ALLERGAN-1208803US

PATIENT
  Age: 38 Year
  Sex: Female

DRUGS (5)
  1. ACZONE [Suspect]
     Indication: ACNE
     Dosage: BID smear to face
     Route: 061
     Dates: start: 201205, end: 201206
  2. CONTRACEPTIVES NOS [Concomitant]
     Indication: BIRTH CONTROL
     Route: 065
  3. PROZAC [Concomitant]
     Indication: DRUG USE FOR UNKNOWN INDICATION
     Route: 065
  4. WELLBUTRIN [Concomitant]
     Indication: DRUG USE FOR UNKNOWN INDICATION
     Route: 065
  5. MINOCYCLINE [Concomitant]
     Indication: DRUG USE FOR UNKNOWN INDICATION
     Route: 065

REACTIONS (3)
  - Rash erythematous [Not Recovered/Not Resolved]
  - Rash [Not Recovered/Not Resolved]
  - Pruritus [Not Recovered/Not Resolved]
